FAERS Safety Report 10146554 (Version 1)
Quarter: 2014Q2

REPORT INFORMATION
  Report Type: Spontaneous
  Country: GB (occurrence: None)
  Receive Date: 20140429
  Receipt Date: 20140429
  Transmission Date: 20141212
  Serious: Yes (Life-Threatening, Other)
  Sender: FDA-Public Use
  Company Number: KAD201404-000430

PATIENT
  Age: 40 Year
  Sex: Female

DRUGS (3)
  1. RIBAVIRIN [Suspect]
     Indication: HEPATITIS C
     Dates: end: 20140129
  2. INTERFERON ALFACON-1 [Suspect]
     Indication: HEPATITIS C
     Route: 058
     Dates: end: 20140129
  3. ZAPONEX [Suspect]
     Indication: HEPATITIS C
     Route: 048
     Dates: start: 20100923, end: 20140129

REACTIONS (9)
  - Agranulocytosis [None]
  - Hepatic cirrhosis [None]
  - Hepatic function abnormal [None]
  - Hepatitis C [None]
  - Leukopenia [None]
  - Neutropenia [None]
  - Platelet count increased [None]
  - Neutrophil count increased [None]
  - Off label use [None]
